FAERS Safety Report 7756352-8 (Version None)
Quarter: 2011Q3

REPORT INFORMATION
  Report Type: 
  Country: None (occurrence: None)
  Receive Date: 20110916
  Receipt Date: 20110906
  Transmission Date: 20111222
  Serious: Yes (Hospitalization)
  Sender: FDA-Public Use
  Company Number: US-BAYER-201031271NA

PATIENT
  Age: 31 Year
  Sex: Female
  Weight: 100.23 kg

DRUGS (6)
  1. IBUPROFEN [Concomitant]
     Dosage: UNK UNK, PRN
  2. ZOLOFT [Concomitant]
     Dosage: UNK
     Dates: start: 20061201, end: 20071001
  3. ASCORBIC ACID [Concomitant]
     Dosage: UNK
     Dates: start: 20000101
  4. VARIOUS ANTIBIOTICS [Concomitant]
     Dosage: UNK
     Dates: start: 20020801
  5. YASMIN [Suspect]
     Indication: CONTRACEPTION
     Dosage: UNK
     Route: 048
     Dates: start: 20060801, end: 20071002
  6. YASMIN [Suspect]
     Indication: MENSTRUAL CYCLE MANAGEMENT

REACTIONS (4)
  - PAIN [None]
  - CHEST PAIN [None]
  - PULMONARY EMBOLISM [None]
  - PULMONARY INFARCTION [None]
